FAERS Safety Report 16510508 (Version 2)
Quarter: 2019Q3

REPORT INFORMATION
  Report Type: Spontaneous
  Country: CN (occurrence: CN)
  Receive Date: 20190702
  Receipt Date: 20190916
  Transmission Date: 20191004
  Serious: Yes (Death, Life-Threatening, Hospitalization, Other)
  Sender: FDA-Public Use
  Company Number: CN-ACCORD-135774

PATIENT
  Age: 74 Year
  Sex: Female

DRUGS (2)
  1. CLOPIDOGREL [Suspect]
     Active Substance: CLOPIDOGREL BISULFATE
     Indication: ANTIPLATELET THERAPY
     Dosage: CLOPIDOGREL 75 MG/DAY
     Route: 048
  2. ASPIRIN. [Suspect]
     Active Substance: ASPIRIN
     Indication: ANTIPLATELET THERAPY
     Dosage: MAINTENANCE OF ASPIRIN 100?MG/DAY
     Route: 048

REACTIONS (5)
  - Paraplegia [Unknown]
  - Respiratory failure [Fatal]
  - Lung infection [Unknown]
  - Spinal cord haemorrhage [Recovered/Resolved]
  - Incontinence [Unknown]
